FAERS Safety Report 15744115 (Version 7)
Quarter: 2020Q4

REPORT INFORMATION
  Report Type: Other
  Country: DE (occurrence: DE)
  Receive Date: 20181220
  Receipt Date: 20201005
  Transmission Date: 20210113
  Serious: Yes (Hospitalization, Disabling, Other)
  Sender: FDA-Public Use
  Company Number: DE-ROCHE-2200894

PATIENT
  Age: 55 Year
  Sex: Female

DRUGS (12)
  1. SATIVEX [Concomitant]
     Active Substance: NABIXIMOLS
     Dosage: 4-8 DF
  2. OCREVUS [Suspect]
     Active Substance: OCRELIZUMAB
     Route: 042
     Dates: start: 20180404
  3. FAMPYRA [Concomitant]
     Active Substance: DALFAMPRIDINE
     Indication: GAIT DISTURBANCE
     Dosage: 1-0-1
  4. EMSELEX [Concomitant]
     Active Substance: DARIFENACIN HYDROBROMIDE
     Indication: BLADDER DYSFUNCTION
  5. VITAMIN D3 [Concomitant]
     Active Substance: CHOLECALCIFEROL
  6. DEKRISTOL [Concomitant]
     Active Substance: CHOLECALCIFEROL
  7. OCREVUS [Suspect]
     Active Substance: OCRELIZUMAB
     Indication: RELAPSING-REMITTING MULTIPLE SCLEROSIS
     Route: 042
     Dates: start: 20180321, end: 201804
  8. OCREVUS [Suspect]
     Active Substance: OCRELIZUMAB
     Route: 042
     Dates: start: 20180918, end: 20180918
  9. BACLOFEN. [Concomitant]
     Active Substance: BACLOFEN
     Indication: BLADDER DYSFUNCTION
     Dosage: 10-25 MG; 10MG- 0 - 25MG
  10. ESCITALOPRAM [Concomitant]
     Active Substance: ESCITALOPRAM OXALATE
     Indication: DEPRESSED MOOD
  11. PANTOPRAZOLE [Concomitant]
     Active Substance: PANTOPRAZOLE
  12. EMSELEX [Concomitant]
     Active Substance: DARIFENACIN HYDROBROMIDE

REACTIONS (11)
  - Basal cell carcinoma [Recovered/Resolved]
  - Nasopharyngitis [Recovered/Resolved]
  - Inflammation of wound [Recovered/Resolved]
  - Oropharyngeal pain [Recovered/Resolved]
  - Multiple sclerosis relapse [Recovered/Resolved]
  - Fall [Unknown]
  - Pain [Not Recovered/Not Resolved]
  - Haematoma [Recovered/Resolved]
  - Breast cancer [Recovered/Resolved with Sequelae]
  - Paraesthesia [Recovered/Resolved]
  - Headache [Unknown]

NARRATIVE: CASE EVENT DATE: 20180321
